FAERS Safety Report 13589666 (Version 1)
Quarter: 2017Q2

REPORT INFORMATION
  Report Type: Spontaneous
  Country: US (occurrence: US)
  Receive Date: 20170527
  Receipt Date: 20170527
  Transmission Date: 20170830
  Serious: Yes (Life-Threatening, Hospitalization, Disabling, Other)
  Sender: FDA-Public Use
  Company Number: None

PATIENT
  Age: 64 Year
  Sex: Male
  Weight: 101.7 kg

DRUGS (11)
  1. RAMIPRIL. [Concomitant]
     Active Substance: RAMIPRIL
  2. MIRALAX [Concomitant]
     Active Substance: POLYETHYLENE GLYCOL 3350
  3. XARELTO [Concomitant]
     Active Substance: RIVAROXABAN
  4. PROPOFENONE HCL [Concomitant]
  5. FLONASE [Concomitant]
     Active Substance: FLUTICASONE PROPIONATE
  6. ALLOPURINOL. [Concomitant]
     Active Substance: ALLOPURINOL
  7. DILTIAZEM. [Concomitant]
     Active Substance: DILTIAZEM
  8. ATORVASTATIN [Concomitant]
     Active Substance: ATORVASTATIN
  9. ZOLPIDEM [Suspect]
     Active Substance: ZOLPIDEM\ZOLPIDEM TARTRATE
     Indication: INSOMNIA
     Dosage: ?          QUANTITY:1 TABLET(S);?A BEDTIME ORAL
     Route: 048
     Dates: start: 20161001, end: 20170427
  10. VITAMIN D [Concomitant]
     Active Substance: CHOLECALCIFEROL
  11. TRAZODONE [Concomitant]
     Active Substance: TRAZODONE HYDROCHLORIDE

REACTIONS (4)
  - Drug effect decreased [None]
  - Skin disorder [None]
  - Suicide attempt [None]
  - Staphylococcal infection [None]

NARRATIVE: CASE EVENT DATE: 20170427
